FAERS Safety Report 8448810-8 (Version None)
Quarter: 2012Q2

REPORT INFORMATION
  Report Type: 
  Country: None (occurrence: None)
  Receive Date: 20120619
  Receipt Date: 20120611
  Transmission Date: 20120825
  Serious: Yes (Hospitalization)
  Sender: FDA-Public Use
  Company Number: DE-ABBOTT-12P-062-0944795-00

PATIENT
  Age: 71 Year
  Sex: Female
  Weight: 63 kg

DRUGS (8)
  1. SIMVASTATIN [Concomitant]
     Indication: HYPERLIPIDAEMIA
  2. METOPROLOL SUCCINATE [Concomitant]
     Indication: HYPERTENSION
  3. METHOTREXATE [Concomitant]
     Indication: RHEUMATOID ARTHRITIS
  4. ASPIRIN [Concomitant]
     Indication: HYPERTENSION
  5. HUMIRA [Suspect]
     Indication: RHEUMATOID ARTHRITIS
     Route: 058
     Dates: start: 20120116, end: 20120404
  6. AMLODIPINE [Concomitant]
     Indication: HYPERTENSION
  7. HUMIRA [Suspect]
     Dosage: 40 MG EVERY WEEK
     Route: 058
     Dates: start: 20120404
  8. ATACAND HCT [Concomitant]
     Indication: HYPERTENSION
     Dosage: 32/12.5MG DAILY

REACTIONS (1)
  - APHASIA [None]
